FAERS Safety Report 5453808-8 (Version None)
Quarter: 2007Q3

REPORT INFORMATION
  Report Type: 
  Country: None (occurrence: None)
  Receive Date: 20070917
  Receipt Date: 20070912
  Transmission Date: 20080115
  Serious: Yes (Life-Threatening, Hospitalization, Other)
  Sender: FDA-Public Use
  Company Number: A0652683A

PATIENT
  Age: 46 Year
  Sex: Male
  Weight: 55.5 kg

DRUGS (6)
  1. LAMICTAL [Suspect]
     Route: 065
     Dates: start: 20070304, end: 20070412
  2. QVAR 40 [Concomitant]
     Indication: ASTHMA
     Route: 055
  3. ALBUTEROL [Concomitant]
     Indication: ASTHMA
     Route: 055
  4. SINGULAIR [Concomitant]
     Indication: ASTHMA
     Dosage: 10MG AT NIGHT
     Route: 048
  5. LOVENOX [Concomitant]
     Indication: THROMBOSIS PROPHYLAXIS
  6. DILANTIN [Concomitant]

REACTIONS (17)
  - ANTICONVULSANT DRUG LEVEL DECREASED [None]
  - COMA [None]
  - CONJUNCTIVITIS [None]
  - CONVULSION [None]
  - COUGH [None]
  - DEEP VEIN THROMBOSIS [None]
  - DEPRESSED LEVEL OF CONSCIOUSNESS [None]
  - DIARRHOEA [None]
  - DIZZINESS [None]
  - DRUG ADMINISTRATION ERROR [None]
  - EYE DISCHARGE [None]
  - GANGRENE [None]
  - GINGIVAL HYPERTROPHY [None]
  - STEVENS-JOHNSON SYNDROME [None]
  - TONGUE ULCERATION [None]
  - TREATMENT NONCOMPLIANCE [None]
  - VOMITING [None]
